FAERS Safety Report 8778866 (Version 1)
Quarter: 2012Q4

REPORT INFORMATION
  Report Type: 
  Country: FR (occurrence: FR)
  Receive Date: 20120912
  Receipt Date: 20120912
  Transmission Date: 20130627
  Serious: Yes (Hospitalization)
  Sender: FDA-Public Use
  Company Number: FR-JNJFOC-20120901332

PATIENT
  Age: 75 Year
  Sex: Female

DRUGS (15)
  1. RISPERDAL [Suspect]
     Indication: PRODUCT USED FOR UNKNOWN INDICATION
     Route: 048
  2. RISPERDAL [Suspect]
     Indication: PRODUCT USED FOR UNKNOWN INDICATION
     Route: 048
  3. EBIXA [Suspect]
     Indication: PRODUCT USED FOR UNKNOWN INDICATION
     Route: 048
     Dates: start: 20120511, end: 20120704
  4. IMOVANE [Suspect]
     Indication: PRODUCT USED FOR UNKNOWN INDICATION
     Route: 048
     Dates: start: 20110912, end: 20120704
  5. LOXAPAC [Suspect]
     Indication: PRODUCT USED FOR UNKNOWN INDICATION
     Route: 048
     Dates: start: 20120120, end: 20120704
  6. MIANSERIN [Suspect]
     Indication: PRODUCT USED FOR UNKNOWN INDICATION
     Route: 048
     Dates: end: 20120704
  7. DUROGESIC [Concomitant]
     Indication: PRODUCT USED FOR UNKNOWN INDICATION
     Route: 062
  8. DAFALGAN [Concomitant]
     Route: 065
  9. DEDROGYL [Concomitant]
     Route: 065
  10. FLUDEX [Concomitant]
     Route: 065
  11. KARDEGIC [Concomitant]
     Route: 065
  12. LEVOTHYROX [Concomitant]
     Route: 065
  13. TAHOR [Concomitant]
     Route: 065
  14. TRANSIPEG [Concomitant]
     Route: 065
  15. BISPHOSPHONATE [Concomitant]
     Route: 065

REACTIONS (9)
  - Confusional state [Recovered/Resolved]
  - Renal impairment [Unknown]
  - Pneumonia aspiration [Recovering/Resolving]
  - Nausea [Unknown]
  - Vomiting [Unknown]
  - Faecaloma [Unknown]
  - Sinus tachycardia [Unknown]
  - General physical health deterioration [Unknown]
  - Urinary retention [Unknown]
